FAERS Safety Report 6292487-7 (Version None)
Quarter: 2009Q3

REPORT INFORMATION
  Report Type: 
  Country: None (occurrence: None)
  Receive Date: 20090731
  Receipt Date: 20090723
  Transmission Date: 20100115
  Serious: Yes (Hospitalization)
  Sender: FDA-Public Use
  Company Number: AU-ASTRAZENECA-2009SE05480

PATIENT
  Age: 64 Year
  Sex: Male

DRUGS (9)
  1. ATACAND [Suspect]
     Route: 048
  2. LANTUS [Suspect]
  3. UREMIDE [Suspect]
  4. ASTRIX 100 [Concomitant]
  5. LIPIDIL [Concomitant]
  6. NOVORAPID [Concomitant]
  7. PRAZOSIN HYDROCHLORIDE [Concomitant]
  8. PROGOUT [Concomitant]
  9. ZANIDIP [Concomitant]

REACTIONS (5)
  - CONFUSIONAL STATE [None]
  - DEHYDRATION [None]
  - DYSPNOEA [None]
  - GASTRITIS [None]
  - RENAL FAILURE [None]
